FAERS Safety Report 5299340-6 (Version None)
Quarter: 2007Q2

REPORT INFORMATION
  Report Type: 
  Country: None (occurrence: None)
  Receive Date: 20070411
  Receipt Date: 20070411
  Transmission Date: 20071010
  Serious: Yes (Death, Life-Threatening, Hospitalization)
  Sender: FDA-Public Use
  Company Number: None

PATIENT
  Age: 76 Year
  Sex: Female
  Weight: 79.3795 kg

DRUGS (15)
  1. ENOXAPARIN SODIUM [Suspect]
     Indication: CEREBROVASCULAR ACCIDENT
     Dosage: 80MG BID SQ
     Route: 058
     Dates: start: 20061213, end: 20061216
  2. ENOXAPARIN SODIUM [Suspect]
     Indication: TRANSIENT ISCHAEMIC ATTACK
     Dosage: 80MG BID SQ
     Route: 058
     Dates: start: 20061213, end: 20061216
  3. WARFARIN SODIUM [Suspect]
     Indication: ATRIAL FIBRILLATION
     Dosage: 7.5 MG DAILY PO
     Route: 048
     Dates: start: 20061213, end: 20061215
  4. ASPIRIN [Suspect]
     Dosage: 81 MG PO DAILY
     Route: 048
     Dates: start: 20061213, end: 20061216
  5. AGGRENOX [Suspect]
     Dosage: 1 BID
     Dates: start: 20061215, end: 20061216
  6. CYMBALTA [Concomitant]
  7. COZAAR [Concomitant]
  8. SENOKOT [Concomitant]
  9. VESICAR [Concomitant]
  10. ASPIRIN [Concomitant]
  11. CARTIA XT [Concomitant]
  12. NORVASC [Concomitant]
  13. COUMADIN [Concomitant]
  14. LIPITOR [Concomitant]
  15. COZAAR [Concomitant]

REACTIONS (5)
  - BRAIN HERNIATION [None]
  - CEREBRAL HAEMORRHAGE [None]
  - DEPRESSED LEVEL OF CONSCIOUSNESS [None]
  - HAEMORRHAGE INTRACRANIAL [None]
  - VOMITING [None]
